FAERS Safety Report 6029013-3 (Version None)
Quarter: 2008Q4

REPORT INFORMATION
  Report Type: 
  Country: None (occurrence: None)
  Receive Date: 20081222
  Receipt Date: 20080925
  Transmission Date: 20090506
  Serious: No
  Sender: FDA-Public Use
  Company Number: ALL1-2008-03241

PATIENT
  Sex: Male

DRUGS (3)
  1. VYVANSE [Suspect]
     Dosage: 30 MG, 1X/DAY:QD, ORAL; 100 MG, ONCE DOSE, ORAL; 50 MG, 1X/DAY:QD, ORAL
     Route: 048
     Dates: start: 20080923, end: 20080923
  2. VYVANSE [Suspect]
     Dosage: 30 MG, 1X/DAY:QD, ORAL; 100 MG, ONCE DOSE, ORAL; 50 MG, 1X/DAY:QD, ORAL
     Route: 048
     Dates: start: 20080924, end: 20080924
  3. VYVANSE [Suspect]
     Dosage: 30 MG, 1X/DAY:QD, ORAL; 100 MG, ONCE DOSE, ORAL; 50 MG, 1X/DAY:QD, ORAL
     Route: 048
     Dates: start: 20080925

REACTIONS (1)
  - ACCIDENTAL OVERDOSE [None]
